FAERS Safety Report 7584021-6 (Version None)
Quarter: 2011Q2

REPORT INFORMATION
  Report Type: 
  Country: None (occurrence: None)
  Receive Date: 20110630
  Receipt Date: 20110620
  Transmission Date: 20111010
  Serious: Yes (Other)
  Sender: FDA-Public Use
  Company Number: US-AMGEN-USASP2011031709

PATIENT
  Age: 29 Year
  Sex: Female

DRUGS (3)
  1. SEVELAMER [Suspect]
  2. SENSIPAR [Suspect]
     Indication: HYPERPARATHYROIDISM TERTIARY
  3. PARICALCITOL [Concomitant]

REACTIONS (8)
  - HYPOACUSIS [None]
  - BLOOD PARATHYROID HORMONE INCREASED [None]
  - OSTEITIS DEFORMANS [None]
  - RENAL OSTEODYSTROPHY [None]
  - PARATHYROIDECTOMY [None]
  - BLOOD ALKALINE PHOSPHATASE INCREASED [None]
  - EXOSTOSIS [None]
  - TOOTH DISORDER [None]
